FAERS Safety Report 12762921 (Version 1)
Quarter: 2016Q3

REPORT INFORMATION
  Report Type: Spontaneous
  Country: AU (occurrence: AU)
  Receive Date: 20160920
  Receipt Date: 20160920
  Transmission Date: 20161109
  Serious: Yes (Life-Threatening)
  Sender: FDA-Public Use
  Company Number: AU-SA-2016SA171214

PATIENT
  Age: 70 Year
  Sex: Female
  Weight: 53 kg

DRUGS (8)
  1. FEXOFENADINE [Suspect]
     Active Substance: FEXOFENADINE\FEXOFENADINE HYDROCHLORIDE
     Route: 048
     Dates: start: 20150927, end: 20160628
  2. ADALAT [Interacting]
     Active Substance: NIFEDIPINE
     Dosage: ADALAT (NIFEDIPINE) 10MG
     Route: 065
     Dates: start: 20160524
  3. AZITHROMYCIN ANHYDROUS. [Concomitant]
     Active Substance: AZITHROMYCIN ANHYDROUS
     Route: 065
  4. DOXYCYCLINE. [Concomitant]
     Active Substance: DOXYCYCLINE
     Route: 065
  5. AMOXICILLIN. [Concomitant]
     Active Substance: AMOXICILLIN
     Route: 065
  6. FELODUR ER [Suspect]
     Active Substance: FELODIPINE
     Route: 065
  7. NEXIUM [Concomitant]
     Active Substance: ESOMEPRAZOLE MAGNESIUM
     Route: 065
  8. ZOFRAN [Concomitant]
     Active Substance: ONDANSETRON HYDROCHLORIDE
     Route: 065

REACTIONS (8)
  - Feeling hot [Recovering/Resolving]
  - Chest pain [Recovering/Resolving]
  - Dry mouth [Recovering/Resolving]
  - Blood pressure decreased [Recovering/Resolving]
  - Drug interaction [Recovering/Resolving]
  - Heart rate increased [Recovering/Resolving]
  - Pruritus [Recovering/Resolving]
  - Malaise [Recovering/Resolving]

NARRATIVE: CASE EVENT DATE: 20160524
